FAERS Safety Report 12819294 (Version 1)
Quarter: 2016Q4

REPORT INFORMATION
  Report Type: Spontaneous
  Country: US (occurrence: US)
  Receive Date: 20161006
  Receipt Date: 20161006
  Transmission Date: 20170207
  Serious: Yes (Other)
  Sender: FDA-Public Use
  Company Number: US-APOTEX-2016AP012583

PATIENT
  Age: 68 Year
  Sex: Male

DRUGS (3)
  1. NITRIC OXIDE. [Concomitant]
     Active Substance: NITRIC OXIDE
     Indication: ACUTE MYOCARDIAL INFARCTION
     Dosage: 20 PPM
     Route: 055
  2. NORMAL SALINE [Concomitant]
     Active Substance: SODIUM CHLORIDE
     Indication: ATRIAL PRESSURE
     Dosage: UNK
     Route: 040
  3. MILRINONE LACTATE INJECTION [Suspect]
     Active Substance: MILRINONE LACTATE
     Indication: ACUTE MYOCARDIAL INFARCTION
     Dosage: UNK
     Route: 065

REACTIONS (1)
  - Ventricular tachycardia [Unknown]
